FAERS Safety Report 19482686 (Version 5)
Quarter: 2022Q2

REPORT INFORMATION
  Report Type: Report from Study
  Country: DE (occurrence: DE)
  Receive Date: 20210701
  Receipt Date: 20220404
  Transmission Date: 20220720
  Serious: Yes (Other)
  Sender: FDA-Public Use
  Company Number: NVSC2021DE144823

PATIENT
  Age: 67 Year
  Sex: Female
  Weight: 109 kg

DRUGS (25)
  1. SIPONIMOD [Suspect]
     Active Substance: SIPONIMOD
     Indication: Secondary progressive multiple sclerosis
     Dosage: UNK
     Route: 048
     Dates: start: 20140218, end: 20160221
  2. SIPONIMOD [Suspect]
     Active Substance: SIPONIMOD
     Indication: Secondary progressive multiple sclerosis
     Dosage: 2 MG
     Route: 048
     Dates: start: 20161222, end: 20210810
  3. IRBESARTAN [Concomitant]
     Active Substance: IRBESARTAN
     Indication: Hypertension
     Dosage: 300 MG, QD
     Route: 048
     Dates: start: 200409, end: 20170614
  4. IRBESARTAN [Concomitant]
     Active Substance: IRBESARTAN
     Dosage: UNK
     Route: 065
     Dates: start: 20160615
  5. AMLODIPINE BESYLATE [Concomitant]
     Active Substance: AMLODIPINE BESYLATE
     Indication: Hypertension
     Dosage: 5 MG, QD
     Route: 048
     Dates: start: 200409, end: 20141110
  6. AMLODIPINE BESYLATE [Concomitant]
     Active Substance: AMLODIPINE BESYLATE
     Dosage: 5 MG, BID
     Route: 048
     Dates: start: 20141111, end: 20200801
  7. SPASMEX [Concomitant]
     Indication: Bladder dysfunction
     Dosage: 5 MG, BID
     Route: 048
     Dates: start: 20120508
  8. DULOXETINE [Concomitant]
     Active Substance: DULOXETINE
     Indication: Neuralgia
     Dosage: 30 MG, QD
     Route: 048
     Dates: start: 20151001, end: 20160525
  9. DULOXETINE [Concomitant]
     Active Substance: DULOXETINE
     Dosage: 30 MG, BID
     Route: 048
     Dates: start: 20160526, end: 20190412
  10. FLUPREDNIDENE ACETATE [Concomitant]
     Active Substance: FLUPREDNIDENE ACETATE
     Indication: Eczema
     Dosage: 1 MG, PRN
     Route: 062
     Dates: start: 20160601, end: 20180317
  11. MIRTAZAPINE [Concomitant]
     Active Substance: MIRTAZAPINE
     Indication: Sleep disorder
     Dosage: 7.5 MG, QD
     Route: 048
     Dates: start: 20161006, end: 20161121
  12. MIRTAZAPINE [Concomitant]
     Active Substance: MIRTAZAPINE
     Dosage: 15 MG, QD
     Route: 048
     Dates: start: 20210626
  13. VOLTAREN [Concomitant]
     Active Substance: DICLOFENAC SODIUM
     Indication: Arthralgia
     Dosage: 100 MG, QD
     Route: 048
     Dates: start: 20161121, end: 20161123
  14. DICLOFENAC [Concomitant]
     Active Substance: DICLOFENAC
     Indication: Pain
     Dosage: 75 MG, PRN
     Route: 048
     Dates: start: 20170223, end: 20180317
  15. PANTOPRAZOLE SODIUM [Concomitant]
     Active Substance: PANTOPRAZOLE SODIUM
     Indication: Gastrointestinal disorder prophylaxis
     Dosage: 20 MG, QD
     Route: 048
     Dates: start: 20170629
  16. PANTOPRAZOLE SODIUM [Concomitant]
     Active Substance: PANTOPRAZOLE SODIUM
     Indication: Prophylaxis
     Dosage: 40 MG, QD
     Route: 048
     Dates: start: 202003, end: 20200401
  17. DALFAMPRIDINE [Concomitant]
     Active Substance: DALFAMPRIDINE
     Indication: Walking disability
     Dosage: 10 MG, BID
     Route: 048
     Dates: start: 20170629
  18. CERTOPARIN SODIUM [Concomitant]
     Active Substance: CERTOPARIN SODIUM
     Indication: Hip arthroplasty
     Dosage: 3000 OTHER, QD
     Route: 030
     Dates: start: 20180710, end: 20180806
  19. CERTOPARIN SODIUM [Concomitant]
     Active Substance: CERTOPARIN SODIUM
     Indication: Thrombosis prophylaxis
     Dosage: 3000 OTHER, QD
     Route: 030
     Dates: start: 202003, end: 20200401
  20. CHOLECALCIFEROL [Concomitant]
     Active Substance: CHOLECALCIFEROL
     Indication: Prophylaxis
     Dosage: 1000 OTHER, PRN
     Route: 048
     Dates: start: 20180723
  21. METAMIZOLE [Concomitant]
     Active Substance: METAMIZOLE
     Indication: Hip arthroplasty
     Dosage: 500 MG, QID
     Route: 048
     Dates: start: 20180723, end: 20180825
  22. METAMIZOLE [Concomitant]
     Active Substance: METAMIZOLE
     Indication: Osteoarthritis
     Dosage: 75 MG, BID
     Route: 048
     Dates: start: 20200107, end: 20200401
  23. NALOXONE HYDROCHLORIDE\TILIDINE HYDROCHLORIDE [Concomitant]
     Active Substance: NALOXONE HYDROCHLORIDE\TILIDINE HYDROCHLORIDE
     Indication: Hip arthroplasty
     Dosage: 50 MG, BID
     Route: 048
     Dates: start: 20180723, end: 20180825
  24. NALOXONE HYDROCHLORIDE\TILIDINE HYDROCHLORIDE [Concomitant]
     Active Substance: NALOXONE HYDROCHLORIDE\TILIDINE HYDROCHLORIDE
     Indication: Hip arthroplasty
     Dosage: 50 MG, BID
     Route: 048
     Dates: start: 202003, end: 20200401
  25. CELEBREX [Concomitant]
     Active Substance: CELECOXIB
     Indication: Hip arthroplasty
     Dosage: 200 MG, BID
     Route: 048
     Dates: start: 202003, end: 20200401

REACTIONS (1)
  - Malignant melanoma [Recovered/Resolved]

NARRATIVE: CASE EVENT DATE: 20210622
